FAERS Safety Report 11642711 (Version 1)
Quarter: 2015Q4

REPORT INFORMATION
  Report Type: Spontaneous
  Country: CA (occurrence: CA)
  Receive Date: 20151020
  Receipt Date: 20151020
  Transmission Date: 20160304
  Serious: Yes (Other)
  Sender: FDA-Public Use
  Company Number: CA-BEH-2015053470

PATIENT
  Age: 74 Year
  Sex: Male

DRUGS (3)
  1. 25% ALBUMIN [Suspect]
     Active Substance: ALBUMIN (HUMAN)
     Indication: CIRRHOSIS ALCOHOLIC
     Dosage: 3 BOTTLES X 100C EACH
     Dates: start: 20150804, end: 20150804
  2. 25% ALBUMIN [Suspect]
     Active Substance: ALBUMIN (HUMAN)
     Dosage: 2 BOTTLES X 100C EACH
     Dates: start: 20150721, end: 20150721
  3. 25% ALBUMIN [Suspect]
     Active Substance: ALBUMIN (HUMAN)
     Indication: PARACENTESIS
     Dates: start: 20150814

REACTIONS (7)
  - Hypersensitivity [Unknown]
  - Pruritus [Recovered/Resolved]
  - Erythema [Recovered/Resolved]
  - Product quality issue [None]
  - Pruritus [Recovered/Resolved]
  - Urticaria [Recovered/Resolved]
  - Blood immunoglobulin A increased [Unknown]

NARRATIVE: CASE EVENT DATE: 20150721
